FAERS Safety Report 24971336 (Version 1)
Quarter: 2025Q1

REPORT INFORMATION
  Report Type: Spontaneous
  Country: US (occurrence: None)
  Receive Date: 20250213
  Receipt Date: 20250213
  Transmission Date: 20250409
  Serious: Yes (Hospitalization, Disabling, Other)
  Sender: FDA-CTU
  Company Number: None

PATIENT
  Age: 24 Year
  Sex: Male
  Weight: 94.5 kg

DRUGS (2)
  1. DILANTIN [Suspect]
     Active Substance: PHENYTOIN
     Indication: Postoperative care
     Dosage: OTHER QUANTITY : 15 INJECTION(S);?FREQUENCY : EVERY 6 HOURS;?
     Route: 042
     Dates: start: 20030714, end: 20030716
  2. DILANTIN [Suspect]
     Active Substance: PHENYTOIN
     Indication: Seizure prophylaxis

REACTIONS (2)
  - Urticaria [None]
  - Drug hypersensitivity [None]

NARRATIVE: CASE EVENT DATE: 20030714
